FAERS Safety Report 8065860-4 (Version None)
Quarter: 2012Q1

REPORT INFORMATION
  Report Type: 
  Country: None (occurrence: None)
  Receive Date: 20120124
  Receipt Date: 20120109
  Transmission Date: 20120608
  Serious: Yes (Other)
  Sender: FDA-Public Use
  Company Number: GB-BAUSCH-2012BL000194

PATIENT
  Age: 69 Year
  Sex: Male

DRUGS (14)
  1. ALENDRONIC ACID [Suspect]
     Indication: PRODUCT USED FOR UNKNOWN INDICATION
     Route: 048
     Dates: start: 20110101
  2. AMINOPHYLLINE [Concomitant]
     Route: 048
  3. ATORVASTATIN [Concomitant]
     Route: 048
  4. METFORMIN HCL [Concomitant]
     Route: 048
  5. LANSOPRAZOLE [Concomitant]
     Route: 048
  6. GLICLAZIDE [Concomitant]
     Route: 048
  7. PREDNISOLONE [Concomitant]
     Route: 048
  8. CALCICHEW D3 /UNK/ [Concomitant]
     Route: 048
  9. FLUTICASONE PROPIONATE [Concomitant]
  10. FUROSEMIDE [Concomitant]
     Route: 048
  11. PRIMIDONE [Concomitant]
     Route: 048
  12. PREDNISOLONE [Suspect]
     Indication: PRODUCT USED FOR UNKNOWN INDICATION
     Route: 048
  13. ADALAT [Concomitant]
     Route: 048
  14. TOLTERODINE TARTRATE [Concomitant]
     Route: 048

REACTIONS (5)
  - GASTRITIS [None]
  - WEIGHT DECREASED [None]
  - GASTRIC ULCER [None]
  - OESOPHAGEAL ULCER [None]
  - GASTROOESOPHAGEAL REFLUX DISEASE [None]
